FAERS Safety Report 18701927 (Version 1)
Quarter: 2021Q1

REPORT INFORMATION
  Report Type: Spontaneous
  Country: US (occurrence: US)
  Receive Date: 20210105
  Receipt Date: 20210105
  Transmission Date: 20210419
  Serious: Yes (Hospitalization)
  Sender: FDA-Public Use
  Company Number: None

PATIENT
  Age: 57 Year
  Sex: Female
  Weight: 104.5 kg

DRUGS (10)
  1. VANCOMYCIN [Suspect]
     Active Substance: VANCOMYCIN
     Indication: SEPSIS
     Route: 042
     Dates: start: 20201204, end: 20201216
  2. CYCLOPENZAPRINE [Concomitant]
  3. OXYCODONE [Concomitant]
     Active Substance: OXYCODONE
  4. AMLODIPINE [Concomitant]
     Active Substance: AMLODIPINE BESYLATE
  5. FERROUS SULFATE. [Concomitant]
     Active Substance: FERROUS SULFATE
  6. MELATONIN [Concomitant]
     Active Substance: MELATONIN
  7. CEFTRIAXONE. [Suspect]
     Active Substance: CEFTRIAXONE
     Dates: start: 20201204, end: 20201217
  8. METOPROLOL. [Concomitant]
     Active Substance: METOPROLOL
  9. LEVOTHYROXINE. [Concomitant]
     Active Substance: LEVOTHYROXINE
  10. GEMFIBROZIL. [Concomitant]
     Active Substance: GEMFIBROZIL

REACTIONS (3)
  - Haemodialysis [None]
  - Blood urea increased [None]
  - Blood creatinine increased [None]

NARRATIVE: CASE EVENT DATE: 20201215
